FAERS Safety Report 6886771-3 (Version None)
Quarter: 2010Q3

REPORT INFORMATION
  Report Type: 
  Country: None (occurrence: None)
  Receive Date: 20100730
  Receipt Date: 20100719
  Transmission Date: 20110219
  Serious: Yes (Hospitalization)
  Sender: FDA-Public Use
  Company Number: FR-PFIZER INC-2010089565

PATIENT
  Age: 50 Year
  Sex: Male

DRUGS (1)
  1. RELPAX [Suspect]
     Indication: MIGRAINE
     Dosage: 1 DF, SINGLE
     Route: 048
     Dates: start: 20090219, end: 20090219

REACTIONS (6)
  - ARTHRALGIA [None]
  - ASTHENIA [None]
  - ERYTHEMA [None]
  - INFLUENZA LIKE ILLNESS [None]
  - PRURITUS [None]
  - RASH MACULO-PAPULAR [None]
